FAERS Safety Report 5465531-4 (Version None)
Quarter: 2007Q3

REPORT INFORMATION
  Report Type: 
  Country: None (occurrence: None)
  Receive Date: 20070924
  Receipt Date: 20070912
  Transmission Date: 20080115
  Serious: Yes (Other)
  Sender: FDA-Public Use
  Company Number: US-GENENTECH-247742

PATIENT

DRUGS (2)
  1. AVASTIN [Suspect]
     Indication: GLIOBLASTOMA
  2. CPT-11 [Concomitant]
     Indication: GLIOBLASTOMA

REACTIONS (1)
  - APPENDICITIS PERFORATED [None]
